FAERS Safety Report 19179284 (Version 2)
Quarter: 2021Q2

REPORT INFORMATION
  Report Type: Spontaneous
  Country: US (occurrence: US)
  Receive Date: 20210426
  Receipt Date: 20210511
  Transmission Date: 20210717
  Serious: Yes (Other)
  Sender: FDA-Public Use
  Company Number: US-VERICEL-US-VCEL-21-000072

PATIENT
  Age: 51 Year
  Sex: Female

DRUGS (2)
  1. MACI [Suspect]
     Active Substance: AUTOLOGOUS CULTURED CHONDROCYTES\SUS SCROFA COLLAGEN
     Indication: PATELLOFEMORAL PAIN SYNDROME
     Dosage: 1 DOSAGE FORM, SINGLE
     Route: 050
     Dates: start: 20210223
  2. MACI [Suspect]
     Active Substance: AUTOLOGOUS CULTURED CHONDROCYTES\SUS SCROFA COLLAGEN
     Indication: OSTEOARTHRITIS

REACTIONS (2)
  - Mobility decreased [Unknown]
  - Pain [Unknown]
